FAERS Safety Report 13170981 (Version 1)
Quarter: 2017Q1

REPORT INFORMATION
  Report Type: Spontaneous
  Country: SE (occurrence: SE)
  Receive Date: 20170201
  Receipt Date: 20170201
  Transmission Date: 20170428
  Serious: Yes (Other)
  Sender: FDA-Public Use
  Company Number: SE-CIPLA LTD.-2017SE01285

PATIENT

DRUGS (2)
  1. NEVANAC [Interacting]
     Active Substance: NEPAFENAC
     Dosage: UNK
     Route: 065
  2. WARFARIN [Suspect]
     Active Substance: WARFARIN
     Dosage: UNK
     Route: 065

REACTIONS (2)
  - Drug interaction [Unknown]
  - International normalised ratio increased [Not Recovered/Not Resolved]
